FAERS Safety Report 13684705 (Version 1)
Quarter: 2017Q2

REPORT INFORMATION
  Report Type: Spontaneous
  Country: US (occurrence: US)
  Receive Date: 20170623
  Receipt Date: 20170623
  Transmission Date: 20170830
  Serious: No
  Sender: FDA-Public Use
  Company Number: US-ASTELLAS-2017US017559

PATIENT
  Age: 81 Year
  Sex: Male

DRUGS (1)
  1. VESICARE [Suspect]
     Active Substance: SOLIFENACIN SUCCINATE
     Indication: MICTURITION URGENCY
     Dosage: 5 MG (BREAKING A 10MG TABLET IN HALF), ONCE DAILY
     Route: 065

REACTIONS (3)
  - Dry mouth [Unknown]
  - Wrong technique in product usage process [Unknown]
  - Drug ineffective [Unknown]
